FAERS Safety Report 5369492-8 (Version None)
Quarter: 2007Q2

REPORT INFORMATION
  Report Type: 
  Country: None (occurrence: None)
  Receive Date: 20070625
  Receipt Date: 20070625
  Transmission Date: 20071010
  Serious: Yes (Other)
  Sender: FDA-Public Use
  Company Number: A0659535A

PATIENT
  Age: 47 Year
  Sex: Female

DRUGS (1)
  1. ALLI [Suspect]
     Route: 048
     Dates: start: 20070617, end: 20070621

REACTIONS (3)
  - ABDOMINAL PAIN [None]
  - ANAL HAEMORRHAGE [None]
  - DIARRHOEA [None]
